FAERS Safety Report 7721855-9 (Version None)
Quarter: 2011Q3

REPORT INFORMATION
  Report Type: 
  Country: None (occurrence: None)
  Receive Date: 20110831
  Receipt Date: 20110826
  Transmission Date: 20111222
  Serious: Yes (Life-Threatening, Hospitalization)
  Sender: FDA-Public Use
  Company Number: BE-BRISTOL-MYERS SQUIBB COMPANY-15320740

PATIENT
  Age: 45 Year
  Sex: Female
  Weight: 30 kg

DRUGS (1)
  1. CETUXIMAB [Suspect]
     Indication: HEAD AND NECK CANCER
     Dosage: 2MG/ML.NO OF INFUSIONS:16.MOST RECENT INFUSION ON 25AUG2010.
     Route: 042
     Dates: start: 20100427

REACTIONS (7)
  - HEAD AND NECK CANCER [None]
  - HYPOKALAEMIA [None]
  - MALNUTRITION [None]
  - WEIGHT DECREASED [None]
  - VOMITING [None]
  - DEHYDRATION [None]
  - NEOPLASM PROGRESSION [None]
